FAERS Safety Report 6633748-9 (Version None)
Quarter: 2010Q1

REPORT INFORMATION
  Report Type: 
  Country: None (occurrence: None)
  Receive Date: 20100315
  Receipt Date: 20100303
  Transmission Date: 20100710
  Serious: Yes (Hospitalization)
  Sender: FDA-Public Use
  Company Number: US-BIOGENIDEC-2010BI007278

PATIENT
  Age: 63 Year
  Sex: Female

DRUGS (1)
  1. AVONEX [Suspect]
     Indication: MULTIPLE SCLEROSIS
     Route: 030
     Dates: start: 20040917

REACTIONS (5)
  - CERVICAL VERTEBRAL FRACTURE [None]
  - FALL [None]
  - FRACTURED COCCYX [None]
  - SPINAL FRACTURE [None]
  - STERNAL FRACTURE [None]
